FAERS Safety Report 10214740 (Version 1)
Quarter: 2014Q2

REPORT INFORMATION
  Report Type: Spontaneous
  Country: US (occurrence: US)
  Receive Date: 20140603
  Receipt Date: 20140603
  Transmission Date: 20141212
  Serious: No
  Sender: FDA-Public Use
  Company Number: US-BAYER-2014-074056

PATIENT
  Age: 72 Year
  Sex: Female

DRUGS (11)
  1. BAYER GENUINE ASPIRIN ORIGINAL STRENGTH [Suspect]
     Dosage: UNK
  2. ALEVE CAPLET [Suspect]
     Dosage: UNK
  3. ACETAMINOPHEN [Concomitant]
  4. HYDROXYCHLOROQUINE [Concomitant]
  5. NYSTATIN [Concomitant]
  6. TRAMADOL [Concomitant]
  7. KLOR-CON [Concomitant]
  8. CEPHALEXIN [Concomitant]
  9. METHOTREXAT [METHOTREXATE] [Concomitant]
  10. LOSARTAN POTASSIUM [Concomitant]
  11. ATENOLOL [Concomitant]

REACTIONS (2)
  - Drug hypersensitivity [None]
  - Drug hypersensitivity [None]
